FAERS Safety Report 10191504 (Version 4)
Quarter: 2014Q3

REPORT INFORMATION
  Report Type: Report from Study
  Country: DE (occurrence: DE)
  Receive Date: 20140523
  Receipt Date: 20140905
  Transmission Date: 20150326
  Serious: Yes (Hospitalization)
  Sender: FDA-Public Use
  Company Number: PHHY2014DE062702

PATIENT
  Sex: Female
  Weight: 62 kg

DRUGS (6)
  1. PANTOZOL [Concomitant]
     Active Substance: PANTOPRAZOLE SODIUM
     Dosage: 40 MG, DAILY
     Dates: start: 20140505
  2. IBUPROFEN. [Concomitant]
     Active Substance: IBUPROFEN
  3. FAMPYRA [Concomitant]
     Active Substance: DALFAMPRIDINE
     Indication: MOBILITY DECREASED
     Dosage: 40 MG, DAILY
     Route: 048
     Dates: start: 20111118
  4. VOTUM /GFR/ [Concomitant]
     Dosage: 10 MG, DAILY
     Dates: start: 2011
  5. GILENYA [Suspect]
     Active Substance: FINGOLIMOD HYDROCHLORIDE
     Indication: MULTIPLE SCLEROSIS
     Dosage: 0.5 MG, QD
     Route: 048
     Dates: start: 20110719
  6. GRIPPOSTAD C [Concomitant]
     Indication: UPPER RESPIRATORY TRACT INFECTION
     Dosage: 3 DF, BID
     Dates: start: 20131109, end: 20131110

REACTIONS (5)
  - Motor dysfunction [Unknown]
  - Transient ischaemic attack [Recovered/Resolved]
  - Sensory loss [Unknown]
  - Dysphagia [Unknown]
  - Aphasia [Recovered/Resolved]

NARRATIVE: CASE EVENT DATE: 20140503
